FAERS Safety Report 24253274 (Version 2)
Quarter: 2025Q1

REPORT INFORMATION
  Report Type: Spontaneous
  Country: US (occurrence: US)
  Receive Date: 20240827
  Receipt Date: 20250327
  Transmission Date: 20250409
  Serious: No
  Sender: BRISTOL-MYERS SQUIBB COMPANY
  Company Number: US-BRISTOL-MYERS SQUIBB COMPANY-2024-135534

PATIENT
  Age: 61 Year
  Sex: Male

DRUGS (2)
  1. ORENCIA [Suspect]
     Active Substance: ABATACEPT
     Indication: Rheumatoid arthritis
     Dosage: STRENGTH: 250MG/VL
     Route: 042
     Dates: start: 202405
  2. ORENCIA [Suspect]
     Active Substance: ABATACEPT
     Dosage: STRENGTH: 250MG/VL
     Route: 042
     Dates: start: 202405

REACTIONS (1)
  - Diarrhoea [Unknown]
